FAERS Safety Report 16698630 (Version 2)
Quarter: 2019Q3

REPORT INFORMATION
  Report Type: Spontaneous
  Country: FR (occurrence: FR)
  Receive Date: 20190813
  Receipt Date: 20190906
  Transmission Date: 20191004
  Serious: Yes (Life-Threatening)
  Sender: FDA-Public Use
  Company Number: FR-MYLANLABS-2019M1075405

PATIENT
  Age: 28 Year
  Sex: Male
  Weight: 85 kg

DRUGS (9)
  1. CEFAZOLIN [Suspect]
     Active Substance: CEFAZOLIN
     Dosage: 6 GRAM
     Route: 042
     Dates: start: 20190128, end: 20190130
  2. CEFOTAXIME [Suspect]
     Active Substance: CEFOTAXIME SODIUM
     Dosage: 3 GRAM
     Route: 042
     Dates: start: 20181224, end: 20190126
  3. XARELTO [Suspect]
     Active Substance: RIVAROXABAN
     Indication: EMBOLISM
     Dosage: 20 MILLIGRAM
     Route: 048
     Dates: start: 20190114, end: 20190201
  4. VANCOMYCIN [Suspect]
     Active Substance: VANCOMYCIN
     Indication: OSTEOMYELITIS
     Dosage: 3.5 GRAM
     Route: 042
     Dates: start: 20181224, end: 20190126
  5. CEFAZOLIN [Suspect]
     Active Substance: CEFAZOLIN
     Indication: OSTEOMYELITIS
     Dosage: 6 GRAM
     Route: 042
     Dates: start: 20190126, end: 20190130
  6. AMOXICILLINE                       /00249601/ [Suspect]
     Active Substance: AMOXICILLIN
     Indication: OSTEOMYELITIS
     Dosage: 12 GRAM
     Route: 042
     Dates: start: 20190126, end: 20190130
  7. VANCOMYCIN [Suspect]
     Active Substance: VANCOMYCIN
     Dosage: 3.5 GRAM
     Route: 042
     Dates: start: 20181223, end: 20190126
  8. CEFOTAXIME [Suspect]
     Active Substance: CEFOTAXIME SODIUM
     Indication: OSTEOMYELITIS
     Dosage: 3 GRAM
     Route: 042
     Dates: start: 20181223, end: 20190126
  9. AMOXICILLINE                       /00249601/ [Suspect]
     Active Substance: AMOXICILLIN
     Dosage: 12 GRAM
     Route: 042
     Dates: start: 20190128, end: 20190130

REACTIONS (6)
  - Inflammation [Recovering/Resolving]
  - Eosinophilia [Recovering/Resolving]
  - Rash maculo-papular [Recovering/Resolving]
  - Purpura [Recovering/Resolving]
  - Transaminases increased [Recovering/Resolving]
  - Rash vesicular [Recovering/Resolving]

NARRATIVE: CASE EVENT DATE: 20190128
